FAERS Safety Report 5734130-9 (Version None)
Quarter: 2008Q2

REPORT INFORMATION
  Report Type: 
  Country: None (occurrence: None)
  Receive Date: 20080509
  Receipt Date: 20080505
  Transmission Date: 20081010
  Serious: Yes (Other)
  Sender: FDA-Public Use
  Company Number: FI-PFIZER INC-2008039280

PATIENT
  Age: 84 Year
  Sex: Female

DRUGS (1)
  1. TOLTERODINE TARTRATE [Suspect]
     Route: 048
     Dates: start: 20080101, end: 20080101

REACTIONS (2)
  - HYPERSENSITIVITY [None]
  - LIP OEDEMA [None]
